FAERS Safety Report 25484474 (Version 1)
Quarter: 2025Q2

REPORT INFORMATION
  Report Type: Spontaneous
  Country: US (occurrence: None)
  Receive Date: 20250626
  Receipt Date: 20250626
  Transmission Date: 20250717
  Serious: Yes (Hospitalization)
  Sender: FDA-CTU
  Company Number: None

PATIENT
  Sex: Female
  Weight: 67.5 kg

DRUGS (4)
  1. DEVICE [Suspect]
     Active Substance: DEVICE
     Indication: Pulmonary arterial hypertension
     Route: 042
     Dates: start: 20250104
  2. SODIUM CHLOR SDV (50ML/FTV) [Concomitant]
  3. MACITENTAN\TADALAFIL [Concomitant]
     Active Substance: MACITENTAN\TADALAFIL
  4. VELETRI [Suspect]
     Active Substance: EPOPROSTENOL

REACTIONS (2)
  - Complication associated with device [None]
  - Device occlusion [None]
